FAERS Safety Report 15859086 (Version 1)
Quarter: 2019Q1

REPORT INFORMATION
  Report Type: Spontaneous
  Country: US (occurrence: US)
  Receive Date: 20190121
  Receipt Date: 20190121
  Transmission Date: 20190417
  Serious: No
  Sender: FDA-Public Use
  Company Number: None

PATIENT

DRUGS (6)
  1. DOXYCYCL HYC [Concomitant]
  2. GABAPENTIN. [Concomitant]
     Active Substance: GABAPENTIN
  3. ROPINROLE [Concomitant]
  4. XOLAIR [Suspect]
     Active Substance: OMALIZUMAB
     Indication: ASTHMA
     Dates: start: 20070108
  5. LISINOP/SCTZ [Concomitant]
  6. WARFARIN [Concomitant]
     Active Substance: WARFARIN

REACTIONS (1)
  - Asthma [None]

NARRATIVE: CASE EVENT DATE: 20190108
